FAERS Safety Report 7689005-5 (Version None)
Quarter: 2011Q3

REPORT INFORMATION
  Report Type: 
  Country: None (occurrence: None)
  Receive Date: 20110817
  Receipt Date: 20110816
  Transmission Date: 20111222
  Serious: Yes (Hospitalization)
  Sender: FDA-Public Use
  Company Number: PHHY2011ZA18599

PATIENT
  Sex: Female

DRUGS (4)
  1. BLADDER PILL [Concomitant]
  2. CALCIUM CARBONATE [Concomitant]
  3. ZOLEDRONOC ACID [Suspect]
     Dosage: 5 MG/100 ML
     Route: 042
  4. LEVOTHYROXINE SODIUM [Concomitant]

REACTIONS (2)
  - FALL [None]
  - FRACTURED SACRUM [None]
